FAERS Safety Report 5093583-2 (Version None)
Quarter: 2006Q3

REPORT INFORMATION
  Report Type: 
  Country: None (occurrence: None)
  Receive Date: 20060829
  Receipt Date: 20060811
  Transmission Date: 20061208
  Serious: Yes (Other)
  Sender: FDA-Public Use
  Company Number: US200607002080

PATIENT
  Age: 60 Year
  Sex: Male

DRUGS (3)
  1. HUMALOG MIX 75/25 [Suspect]
     Indication: DIABETES MELLITUS
     Dates: start: 19880101
  2. HUMALOG MIX 25/75 [Concomitant]
  3. CIALIS [Concomitant]

REACTIONS (14)
  - CONVULSION [None]
  - CROHN'S DISEASE [None]
  - ERECTILE DYSFUNCTION [None]
  - FALL [None]
  - MOVEMENT DISORDER [None]
  - MUSCULAR WEAKNESS [None]
  - MUSCULOSKELETAL PAIN [None]
  - NERVE INJURY [None]
  - NERVOUS SYSTEM DISORDER [None]
  - ROAD TRAFFIC ACCIDENT [None]
  - ROTATOR CUFF SYNDROME [None]
  - SPINAL DISORDER [None]
  - THERMAL BURN [None]
  - VISUAL ACUITY REDUCED [None]
